FAERS Safety Report 7426303-4 (Version None)
Quarter: 2011Q2

REPORT INFORMATION
  Report Type: 
  Country: None (occurrence: None)
  Receive Date: 20110420
  Receipt Date: 20110412
  Transmission Date: 20111010
  Serious: Yes (Hospitalization)
  Sender: FDA-Public Use
  Company Number: A0923446A

PATIENT
  Sex: Female

DRUGS (4)
  1. DEPAKOTE [Suspect]
     Dates: end: 20030101
  2. LAMOTRIGINE [Suspect]
     Dosage: 100MG TWICE PER DAY
     Route: 048
     Dates: start: 20010101, end: 20010101
  3. NEURONTIN [Suspect]
     Dates: end: 20030101
  4. LAMICTAL [Suspect]
     Route: 048

REACTIONS (2)
  - CONVULSION [None]
  - BRAIN OPERATION [None]
